FAERS Safety Report 11518233 (Version 1)
Quarter: 2015Q3

REPORT INFORMATION
  Report Type: Report from Study
  Country: US (occurrence: US)
  Receive Date: 20150917
  Receipt Date: 20150917
  Transmission Date: 20151125
  Serious: Yes (Other)
  Sender: FDA-Public Use
  Company Number: US-JNJFOC-20150913527

PATIENT
  Age: 68 Year
  Sex: Male

DRUGS (18)
  1. BENICAR [Concomitant]
     Active Substance: OLMESARTAN MEDOXOMIL
  2. GLIMEPRIRIDE SANDOZ [Concomitant]
  3. IMBRUVICA [Suspect]
     Active Substance: IBRUTINIB
     Indication: PLASMA CELL MYELOMA
     Route: 048
  4. IMBRUVICA [Suspect]
     Active Substance: IBRUTINIB
     Indication: PLASMA CELL MYELOMA
     Route: 048
     Dates: start: 20150610
  5. TYLENOL [Concomitant]
     Active Substance: ACETAMINOPHEN
  6. LOSARTAN. [Concomitant]
     Active Substance: LOSARTAN
  7. ASPIRIN. [Concomitant]
     Active Substance: ASPIRIN
  8. METOPROLOL [Concomitant]
     Active Substance: METOPROLOL
  9. AMLODIPINE [Concomitant]
     Active Substance: AMLODIPINE BESYLATE
  10. URSODIOL. [Concomitant]
     Active Substance: URSODIOL
  11. IMBRUVICA [Suspect]
     Active Substance: IBRUTINIB
     Indication: CHRONIC LYMPHOCYTIC LEUKAEMIA
     Route: 048
  12. IMBRUVICA [Suspect]
     Active Substance: IBRUTINIB
     Indication: CHRONIC LYMPHOCYTIC LEUKAEMIA
     Route: 048
     Dates: start: 20150610
  13. FISH OIL [Concomitant]
     Active Substance: FISH OIL
  14. OMEPRAZOLE. [Concomitant]
     Active Substance: OMEPRAZOLE
  15. CRESTOR [Concomitant]
     Active Substance: ROSUVASTATIN CALCIUM
  16. FOLIC ACID. [Concomitant]
     Active Substance: FOLIC ACID
  17. BRILINTA [Concomitant]
     Active Substance: TICAGRELOR
  18. HYDRALAZINE [Concomitant]
     Active Substance: HYDRALAZINE HYDROCHLORIDE

REACTIONS (3)
  - Myocardial infarction [Unknown]
  - Constipation [Unknown]
  - Decreased appetite [Unknown]

NARRATIVE: CASE EVENT DATE: 2015
